FAERS Safety Report 6128170-8 (Version None)
Quarter: 2009Q1

REPORT INFORMATION
  Report Type: 
  Country: None (occurrence: None)
  Receive Date: 20090323
  Receipt Date: 20090311
  Transmission Date: 20090719
  Serious: Yes (Hospitalization)
  Sender: FDA-Public Use
  Company Number: US-ROCHE-621433

PATIENT
  Sex: Female

DRUGS (2)
  1. PEG-INTERFERON A-2A (RO 25-8310) [Suspect]
     Indication: HEPATITIS C
     Dosage: PATIENT IN WEEK 20, FORM: PFS (PRE FILLED SYRINGE)
     Route: 065
     Dates: start: 20081024
  2. RIBAVIRIN [Suspect]
     Indication: HEPATITIS C
     Dosage: PATIENT IN WEEK 20, MISSED FULL ONE WEEK DOSE
     Route: 065
     Dates: start: 20081024

REACTIONS (8)
  - ALOPECIA [None]
  - ANAEMIA [None]
  - ANOREXIA [None]
  - FATIGUE [None]
  - HEADACHE [None]
  - HERNIA [None]
  - INSOMNIA [None]
  - PAIN [None]
